FAERS Safety Report 8477829-6 (Version None)
Quarter: 2012Q2

REPORT INFORMATION
  Report Type: 
  Country: None (occurrence: None)
  Receive Date: 20120629
  Receipt Date: 20120625
  Transmission Date: 20120825
  Serious: Yes (Hospitalization, Other)
  Sender: FDA-Public Use
  Company Number: CO-PFIZER INC-2012153612

PATIENT
  Sex: Male

DRUGS (5)
  1. WARFARIN [Concomitant]
     Indication: REHABILITATION THERAPY
     Dosage: UNK
     Route: 065
  2. HYDROXYZINE [Concomitant]
     Indication: REHABILITATION THERAPY
     Dosage: UNK
     Route: 065
  3. CARVEDILOL [Concomitant]
     Indication: REHABILITATION THERAPY
     Dosage: 25 MG, EACH 8 HOURS
     Route: 048
     Dates: start: 20020101
  4. CARDURA [Suspect]
     Indication: REHABILITATION THERAPY
     Dosage: 4 MG, UNK
     Route: 048
     Dates: start: 20020101
  5. ENALAPRIL [Concomitant]
     Indication: REHABILITATION THERAPY
     Dosage: 20 MG, EACH 12 HOURS
     Route: 048
     Dates: start: 20020101

REACTIONS (7)
  - DIZZINESS [None]
  - EAR INFECTION [None]
  - HYPOACUSIS [None]
  - AURICULAR SWELLING [None]
  - PRURITUS [None]
  - ANGIOPATHY [None]
  - DRUG DOSE OMISSION [None]
